FAERS Safety Report 8196941-2 (Version None)
Quarter: 2012Q1

REPORT INFORMATION
  Report Type: 
  Country: None (occurrence: None)
  Receive Date: 20120309
  Receipt Date: 20120228
  Transmission Date: 20120608
  Serious: Yes (Other)
  Sender: FDA-Public Use
  Company Number: US-JNJFOC-20120300802

PATIENT
  Sex: Female
  Weight: 44.45 kg

DRUGS (4)
  1. TEMAZEPAM [Concomitant]
     Indication: SLEEP DISORDER
     Route: 048
  2. GABAPENTIN [Concomitant]
     Indication: BONE DISORDER
     Route: 048
  3. DURAGESIC-100 [Suspect]
     Indication: LIP AND/OR ORAL CAVITY CANCER
     Route: 062
     Dates: start: 20120101
  4. XANAX [Concomitant]
     Indication: ANXIETY
     Route: 048

REACTIONS (8)
  - PYREXIA [None]
  - MALAISE [None]
  - PANCREATITIS [None]
  - NERVOUSNESS [None]
  - PRODUCT QUALITY ISSUE [None]
  - NIGHT SWEATS [None]
  - COLD SWEAT [None]
  - DRUG INEFFECTIVE [None]
